FAERS Safety Report 6010869-5 (Version None)
Quarter: 2008Q4

REPORT INFORMATION
  Report Type: 
  Country: None (occurrence: None)
  Receive Date: 20081218
  Receipt Date: 20081209
  Transmission Date: 20090506
  Serious: No
  Sender: FDA-Public Use
  Company Number: CR-AVENTIS-200821567GDDC

PATIENT
  Age: 29 Year
  Sex: Female

DRUGS (1)
  1. ARAVA [Suspect]
     Indication: RHEUMATOID ARTHRITIS
     Route: 048
     Dates: start: 20081021, end: 20081120

REACTIONS (1)
  - DRUG EXPOSURE DURING PREGNANCY [None]
